FAERS Safety Report 16303151 (Version 4)
Quarter: 2021Q3

REPORT INFORMATION
  Report Type: Spontaneous
  Country: US (occurrence: US)
  Receive Date: 20190513
  Receipt Date: 20210720
  Transmission Date: 20211014
  Serious: Yes (Hospitalization, Other)
  Sender: FDA-Public Use
  Company Number: US-ASTRAZENECA-2019SE65663

PATIENT
  Age: 751 Month
  Sex: Male
  Weight: 78 kg

DRUGS (51)
  1. NEXIUM 24HR [Suspect]
     Active Substance: ESOMEPRAZOLE MAGNESIUM
     Indication: DYSPEPSIA
     Dosage: 20.0MG UNKNOWN
     Route: 048
     Dates: start: 2007, end: 2014
  2. MULTIVITAMIN [Concomitant]
     Active Substance: VITAMINS
     Dates: start: 2005
  3. ALPRAZOLAM. [Concomitant]
     Active Substance: ALPRAZOLAM
  4. ULORIC [Concomitant]
     Active Substance: FEBUXOSTAT
  5. MELOXICAM. [Concomitant]
     Active Substance: MELOXICAM
  6. SODIUM BICARBONATE. [Concomitant]
     Active Substance: SODIUM BICARBONATE
     Indication: DYSPEPSIA
     Dates: start: 201603, end: 201604
  7. ALLOPURINOL. [Concomitant]
     Active Substance: ALLOPURINOL
     Indication: GOUT
     Dates: start: 201306
  8. GEMFIBROZIL. [Concomitant]
     Active Substance: GEMFIBROZIL
     Indication: BLOOD CHOLESTEROL ABNORMAL
     Dates: start: 201308
  9. VITAMIN D [Concomitant]
     Active Substance: VITAMIN D NOS
     Dates: start: 2005
  10. PRAVASTATIN. [Concomitant]
     Active Substance: PRAVASTATIN
  11. VIAGRA [Concomitant]
     Active Substance: SILDENAFIL CITRATE
  12. MUCINEX [Concomitant]
     Active Substance: GUAIFENESIN
  13. CHERATUSSIN [Concomitant]
     Active Substance: AMMONIUM CHLORIDE\DEXTROMETHORPHAN\SODIUM CITRATE
  14. FUROSEMIDE. [Concomitant]
     Active Substance: FUROSEMIDE
  15. TAMSULOSIN [Concomitant]
     Active Substance: TAMSULOSIN
  16. PRILOSEC OTC [Suspect]
     Active Substance: OMEPRAZOLE MAGNESIUM
     Indication: DYSPEPSIA
     Route: 048
  17. PREVACID 24 HR [Suspect]
     Active Substance: LANSOPRAZOLE
     Indication: DYSPEPSIA
     Route: 065
  18. METFORMIN [Concomitant]
     Active Substance: METFORMIN HYDROCHLORIDE
     Indication: DIABETES MELLITUS
     Dates: start: 200706, end: 201601
  19. TUMS [Concomitant]
     Active Substance: CALCIUM CARBONATE
  20. DICLOFENAC [Concomitant]
     Active Substance: DICLOFENAC
  21. PREDNISONE. [Concomitant]
     Active Substance: PREDNISONE
  22. NITROGLYCERIN. [Concomitant]
     Active Substance: NITROGLYCERIN
  23. CALCITRIOL. [Concomitant]
     Active Substance: CALCITRIOL
  24. NEXIUM 24HR [Suspect]
     Active Substance: ESOMEPRAZOLE MAGNESIUM
     Indication: DYSPEPSIA
     Route: 048
  25. GLIPIZIDE. [Concomitant]
     Active Substance: GLIPIZIDE
     Indication: DIABETES MELLITUS
     Dates: start: 201007
  26. TYLENOL [Concomitant]
     Active Substance: ACETAMINOPHEN
     Indication: PAIN
  27. VITAMIN B COMPLEX [Concomitant]
     Active Substance: CYANOCOBALAMIN\DEXPANTHENOL\NIACINAMIDE\PYRIDOXINE HYDROCHLORIDE\RIBOFLAVIN 5^-PHOSPHATE SODIUM\THIAMINE HYDROCHLORIDE\VITAMIN B COMPLEX
     Dates: start: 2018
  28. HEPARIN [Concomitant]
     Active Substance: HEPARIN SODIUM
  29. EZETIMIBE. [Concomitant]
     Active Substance: EZETIMIBE
  30. AMLODIPINE BESYLATE. [Concomitant]
     Active Substance: AMLODIPINE BESYLATE
     Indication: BLOOD PRESSURE ABNORMAL
     Dates: start: 201204, end: 201606
  31. PEPTO?BISMOL [Concomitant]
     Active Substance: BISMUTH SUBSALICYLATE
  32. DOXY?CYCLINE [Concomitant]
  33. CYCLOBENZAPR [Concomitant]
     Active Substance: CYCLOBENZAPRINE
  34. ZETIA [Concomitant]
     Active Substance: EZETIMIBE
  35. CALCIUM ACETATE. [Concomitant]
     Active Substance: CALCIUM ACETATE
  36. PREVACID 24 HR [Suspect]
     Active Substance: LANSOPRAZOLE
     Indication: DYSPEPSIA
     Dosage: 15.0MG UNKNOWN
     Route: 065
     Dates: start: 2002, end: 2007
  37. ZANTAC 75 OTC [Concomitant]
     Dates: start: 2008, end: 2010
  38. PROMETHAZINE [Concomitant]
     Active Substance: PROMETHAZINE HYDROCHLORIDE
  39. GLYBURIDE. [Concomitant]
     Active Substance: GLYBURIDE
  40. GLUCAGON. [Concomitant]
     Active Substance: GLUCAGON
  41. NEXIUM [Suspect]
     Active Substance: ESOMEPRAZOLE MAGNESIUM
     Route: 048
  42. PRILOSEC OTC [Suspect]
     Active Substance: OMEPRAZOLE MAGNESIUM
     Indication: DYSPEPSIA
     Dosage: 20.0MG UNKNOWN
     Route: 048
     Dates: start: 2002, end: 2007
  43. ZEGERID OTC [Suspect]
     Active Substance: OMEPRAZOLE\SODIUM BICARBONATE
     Indication: DYSPEPSIA
     Dosage: 20.0MG UNKNOWN
     Route: 065
     Dates: start: 2008, end: 2014
  44. LISINOPRIL. [Concomitant]
     Active Substance: LISINOPRIL
     Indication: BLOOD PRESSURE ABNORMAL
     Dates: start: 201007
  45. FLUCONAZOLE. [Concomitant]
     Active Substance: FLUCONAZOLE
  46. TRAMADOL HCL [Concomitant]
     Active Substance: TRAMADOL HYDROCHLORIDE
  47. FOLIC ACID. [Concomitant]
     Active Substance: FOLIC ACID
  48. TARKA [Concomitant]
     Active Substance: TRANDOLAPRIL\VERAPAMIL HYDROCHLORIDE
  49. BIDEX [Concomitant]
  50. ONDANSETRON [Concomitant]
     Active Substance: ONDANSETRON
  51. DEXTROSE. [Concomitant]
     Active Substance: DEXTROSE

REACTIONS (5)
  - Renal failure [Unknown]
  - Chronic kidney disease-mineral and bone disorder [Unknown]
  - Acute kidney injury [Not Recovered/Not Resolved]
  - End stage renal disease [Not Recovered/Not Resolved]
  - Chronic kidney disease [Not Recovered/Not Resolved]

NARRATIVE: CASE EVENT DATE: 201408
